FAERS Safety Report 5926102-6 (Version None)
Quarter: 2008Q4

REPORT INFORMATION
  Report Type: 
  Country: None (occurrence: None)
  Receive Date: 20081016
  Receipt Date: 20081001
  Transmission Date: 20090506
  Serious: Yes (Hospitalization)
  Sender: FDA-Public Use
  Company Number: CIP08002075

PATIENT
  Age: 91 Year
  Sex: Female

DRUGS (9)
  1. FURADANTIN [Suspect]
     Indication: URINARY TRACT INFECTION
     Dosage: 1 DOSAGE FORM 3 TIMES DAILY, ORAL
     Route: 048
     Dates: start: 20080812, end: 20080101
  2. PREVISCAN (FLUINDIONE) TABLET, 20MG [Suspect]
     Indication: ATRIAL FIBRILLATION
     Dosage: 0.25 DOSAGE FORM DAILY, ORAL; 0.25 DF EVERY 4 DAYS, ORAL
     Route: 048
     Dates: end: 20080101
  3. PREVISCAN (FLUINDIONE) TABLET, 20MG [Suspect]
     Indication: ATRIAL FIBRILLATION
     Dosage: 0.25 DOSAGE FORM DAILY, ORAL; 0.25 DF EVERY 4 DAYS, ORAL
     Route: 048
     Dates: start: 20080101
  4. DIGOXINE NATIVELLE (DIGOXIN) 25 MG [Concomitant]
  5. CORDARONE /00133101/ (AMIODARONE) [Concomitant]
  6. LEVOTHYROXINE SODIUM [Concomitant]
  7. EFFERALGAN  /00020001/ (PARACETAMOL) [Concomitant]
  8. TRIATEC /00116401/ (CODEINE PHOSPHATE, PARACETAMOL) [Concomitant]
  9. ISKEDYL (DIHYDROERGOCRISTINE MESILATE, RAUBASINE) [Concomitant]

REACTIONS (20)
  - ABDOMINAL PAIN [None]
  - ANAEMIA [None]
  - ANOREXIA [None]
  - BLOOD GLUCOSE INCREASED [None]
  - BLOOD SODIUM DECREASED [None]
  - BLOOD UREA INCREASED [None]
  - CARDIAC MURMUR [None]
  - CONVULSION [None]
  - DRUG INTERACTION [None]
  - ECCHYMOSIS [None]
  - FLANK PAIN [None]
  - HAEMATURIA [None]
  - HYPOTENSION [None]
  - INTERNATIONAL NORMALISED RATIO INCREASED [None]
  - LOSS OF CONSCIOUSNESS [None]
  - NAUSEA [None]
  - PALLOR [None]
  - SYNCOPE [None]
  - VOMITING [None]
  - WHITE BLOOD CELL COUNT INCREASED [None]
